FAERS Safety Report 17525510 (Version 2)
Quarter: 2020Q1

REPORT INFORMATION
  Report Type: Report from Study
  Country: US (occurrence: US)
  Receive Date: 20200310
  Receipt Date: 20200319
  Transmission Date: 20200409
  Serious: Yes (Other)
  Sender: FDA-Public Use
  Company Number: US-AGIOS-2002US01665

PATIENT

DRUGS (3)
  1. TIBSOVO [Suspect]
     Active Substance: IVOSIDENIB
     Indication: GLIOBLASTOMA MULTIFORME
     Dosage: 500 MILLIGRAM, QD
     Dates: start: 20190901, end: 20200201
  2. TIBSOVO [Suspect]
     Active Substance: IVOSIDENIB
     Dosage: 500 MILLIGRAM, QD
     Dates: start: 20200211
  3. AVASTIN                            /00848101/ [Concomitant]
     Active Substance: SIMVASTATIN
     Indication: GLIOBLASTOMA MULTIFORME
     Dosage: UNK
     Dates: start: 20190920

REACTIONS (3)
  - Product dose omission [Recovered/Resolved]
  - Malignant neoplasm progression [Unknown]
  - Off label use [Unknown]

NARRATIVE: CASE EVENT DATE: 20200201
